FAERS Safety Report 17057287 (Version 1)
Quarter: 2019Q4

REPORT INFORMATION
  Report Type: Spontaneous
  Country: ES (occurrence: ES)
  Receive Date: 20191121
  Receipt Date: 20191121
  Transmission Date: 20200122
  Serious: Yes (Death, Life-Threatening, Hospitalization, Other)
  Sender: FDA-Public Use
  Company Number: ES-ACCORD-161819

PATIENT
  Age: 38 Year
  Sex: Female

DRUGS (6)
  1. GANCICLOVIR. [Concomitant]
     Active Substance: GANCICLOVIR
     Indication: PROPHYLAXIS
     Dates: start: 2017
  2. TACROLIMUS. [Suspect]
     Active Substance: TACROLIMUS
     Indication: IMMUNOSUPPRESSANT DRUG THERAPY
     Dates: start: 2017
  3. BASILIXIMAB [Suspect]
     Active Substance: BASILIXIMAB
     Indication: IMMUNOSUPPRESSANT DRUG THERAPY
     Dosage: SINGLE DOSE
     Dates: start: 2017, end: 2017
  4. SULFAMETHOXAZOLE/TRIMETHOPRIM [Concomitant]
     Indication: PROPHYLAXIS
     Dates: start: 2017
  5. MYCOPHENOLIC ACID. [Suspect]
     Active Substance: MYCOPHENOLIC ACID
     Indication: IMMUNOSUPPRESSANT DRUG THERAPY
     Dates: start: 2017
  6. MICAFUNGIN/MICAFUNGIN SODIUM [Concomitant]
     Indication: PROPHYLAXIS
     Dates: start: 2017

REACTIONS (11)
  - Hypogammaglobulinaemia [Unknown]
  - Hemiparesis [Unknown]
  - Subdural haematoma [Not Recovered/Not Resolved]
  - Atelectasis [Not Recovered/Not Resolved]
  - Anaemia [Unknown]
  - Haemorrhage intracranial [Fatal]
  - Systemic mycosis [Fatal]
  - Thrombocytopenia [Unknown]
  - Brain herniation [Fatal]
  - Leukocytosis [Not Recovered/Not Resolved]
  - Pleural effusion [Not Recovered/Not Resolved]

NARRATIVE: CASE EVENT DATE: 2017
